FAERS Safety Report 7134376-1 (Version None)
Quarter: 2010Q4

REPORT INFORMATION
  Report Type: 
  Country: None (occurrence: None)
  Receive Date: 20101130
  Receipt Date: 20101130
  Transmission Date: 20110411
  Serious: Yes (Hospitalization, Other)
  Sender: FDA-Public Use
  Company Number: None

PATIENT
  Age: 87 Year
  Sex: Male
  Weight: 60.782 kg

DRUGS (1)
  1. PREDNISONE [Suspect]
     Indication: CHRONIC OBSTRUCTIVE PULMONARY DISEASE
     Dosage: 60 MG WITH 10 MG TAPER Q 2 WK DAILY PO
     Route: 048
     Dates: start: 20100822, end: 20101110

REACTIONS (6)
  - CANDIDIASIS [None]
  - DEAFNESS [None]
  - EAR PAIN [None]
  - HYPERGLYCAEMIA [None]
  - OTORRHOEA [None]
  - TRIGEMINAL NEURALGIA [None]
